FAERS Safety Report 6978784-8 (Version None)
Quarter: 2010Q3

REPORT INFORMATION
  Report Type: 
  Country: None (occurrence: None)
  Receive Date: 20100913
  Receipt Date: 20100903
  Transmission Date: 20110219
  Serious: Yes (Other)
  Sender: FDA-Public Use
  Company Number: IN-BAXTER-2010BH021912

PATIENT
  Age: 50 Year
  Sex: Male
  Weight: 68 kg

DRUGS (1)
  1. DEXTROSE 5% [Suspect]
     Indication: SUPPLEMENTATION THERAPY
     Route: 042
     Dates: start: 20100816, end: 20100816

REACTIONS (1)
  - CHILLS [None]
